FAERS Safety Report 4727498-3 (Version None)
Quarter: 2005Q3

REPORT INFORMATION
  Report Type: 
  Country: None (occurrence: None)
  Receive Date: 20050727
  Receipt Date: 20050727
  Transmission Date: 20060218
  Serious: Yes (Disabling)
  Sender: FDA-Public Use
  Company Number: None

PATIENT
  Sex: Female
  Weight: 57.1532 kg

DRUGS (13)
  1. PRILOSEC [Suspect]
     Indication: BARRETT'S OESOPHAGUS
     Dosage: 20 MG CAPSULE, 2X/DAY
     Dates: start: 20040601
  2. PRILOSEC [Suspect]
     Indication: GASTROOESOPHAGEAL REFLUX DISEASE
     Dosage: 20 MG CAPSULE, 2X/DAY
     Dates: start: 20040601
  3. PRILOSEC [Suspect]
     Indication: HERNIA
     Dosage: 20 MG CAPSULE, 2X/DAY
     Dates: start: 20040601
  4. VITAMIN SUPPLEMENTS [Concomitant]
  5. VITAMIN B COMPLEX CAP [Concomitant]
  6. VITAMIN D [Concomitant]
  7. VITAMIN E [Concomitant]
  8. CALCIUM GLUCONATE [Concomitant]
  9. MAGNESIUM [Concomitant]
  10. ZINC [Concomitant]
  11. POTASSIUM CHLORIDE [Concomitant]
  12. ASPIRIN [Concomitant]
  13. ADVIL [Concomitant]

REACTIONS (5)
  - AMNESIA [None]
  - COGNITIVE DISORDER [None]
  - CONFUSIONAL STATE [None]
  - IMPAIRED WORK ABILITY [None]
  - THINKING ABNORMAL [None]
